FAERS Safety Report 8991322 (Version 2)
Quarter: 2013Q1

REPORT INFORMATION
  Report Type: Spontaneous
  Country: CA (occurrence: CA)
  Receive Date: 20121230
  Receipt Date: 20130201
  Transmission Date: 20140127
  Serious: Yes (Other)
  Sender: FDA-Public Use
  Company Number: CA-BRISTOL-MYERS SQUIBB COMPANY-17231358

PATIENT
  Age: 54 Year
  Sex: Female

DRUGS (8)
  1. SPRYCEL [Suspect]
     Indication: CHRONIC MYELOID LEUKAEMIA
     Route: 048
     Dates: start: 20111010
  2. LASIX [Concomitant]
  3. ACETYLSALICYLIC ACID [Concomitant]
  4. ROSUVASTATIN [Concomitant]
  5. LOSARTAN [Concomitant]
  6. SPIRONOLACTONE [Concomitant]
  7. LORAZEPAM [Concomitant]
  8. PRAVASTATIN SODIUM [Concomitant]

REACTIONS (6)
  - Skin cancer [Unknown]
  - Joint stiffness [Unknown]
  - Trigger finger [Unknown]
  - Fatigue [Unknown]
  - Dyspnoea exertional [Unknown]
  - Blood cholesterol increased [Unknown]
